FAERS Safety Report 19728383 (Version 1)
Quarter: 2021Q3

REPORT INFORMATION
  Report Type: Spontaneous
  Country: US (occurrence: US)
  Receive Date: 20210820
  Receipt Date: 20210820
  Transmission Date: 20211014
  Serious: Yes (Hospitalization)
  Sender: FDA-Public Use
  Company Number: NVSC2021US183204

PATIENT
  Age: 27 Year
  Sex: Male

DRUGS (2)
  1. ADAKVEO [Suspect]
     Active Substance: CRIZANLIZUMAB-TMCA
     Indication: SICKLE CELL DISEASE
     Dosage: 5 MG/KG, Q4W ((EVERY 28 DAYS) VIA INTRAVENOUS INFUSION OVER 30 MINUTES)
     Route: 042
     Dates: start: 202004
  2. ADAKVEO [Suspect]
     Active Substance: CRIZANLIZUMAB-TMCA
     Dosage: 5 MG/KG, Q4W ((EVERY 28 DAYS) VIA INTRAVENOUS INFUSION OVER 30 MINUTES)
     Route: 042
     Dates: start: 20210624, end: 20210624

REACTIONS (1)
  - Pyrexia [Unknown]

NARRATIVE: CASE EVENT DATE: 20210624
